FAERS Safety Report 13382511 (Version 1)
Quarter: 2017Q1

REPORT INFORMATION
  Report Type: Spontaneous
  Country: JP (occurrence: JP)
  Receive Date: 20170329
  Receipt Date: 20170329
  Transmission Date: 20170429
  Serious: Yes (Other)
  Sender: FDA-Public Use
  Company Number: JP-UCBSA-2016041305

PATIENT
  Age: 16 Year
  Sex: Female

DRUGS (9)
  1. E KEPPRA [Suspect]
     Active Substance: LEVETIRACETAM
     Dosage: 1000 MG DAILY
     Route: 048
     Dates: start: 20131030, end: 20160409
  2. TEGRETOL [Suspect]
     Active Substance: CARBAMAZEPINE
     Dosage: 550 MG DAILY
     Route: 048
     Dates: start: 20160112, end: 2016
  3. TEGRETOL [Suspect]
     Active Substance: CARBAMAZEPINE
     Dosage: 400 MG DAILY
     Route: 048
     Dates: start: 20080816
  4. TEGRETOL [Suspect]
     Active Substance: CARBAMAZEPINE
     Dosage: 600 MG DAILY
     Route: 048
     Dates: start: 20140806
  5. E KEPPRA [Suspect]
     Active Substance: LEVETIRACETAM
     Indication: EPILEPSY
     Dosage: 500 MG DAILY
     Route: 048
     Dates: start: 20130902, end: 20130925
  6. E KEPPRA [Suspect]
     Active Substance: LEVETIRACETAM
     Dosage: 750 MG DAILY
     Route: 048
     Dates: start: 20130925, end: 20131030
  7. E KEPPRA [Suspect]
     Active Substance: LEVETIRACETAM
     Dosage: 1250 MG DAILY
     Route: 048
     Dates: start: 20160409, end: 20161019
  8. TEGRETOL [Suspect]
     Active Substance: CARBAMAZEPINE
     Indication: PRODUCT USED FOR UNKNOWN INDICATION
     Dosage: 125 MG DAILY
     Route: 048
     Dates: start: 20071115
  9. TEGRETOL [Suspect]
     Active Substance: CARBAMAZEPINE
     Dosage: 575 MG DAILY
     Route: 048
     Dates: start: 20160608

REACTIONS (1)
  - Eosinophilia [Recovered/Resolved]

NARRATIVE: CASE EVENT DATE: 20161012
